FAERS Safety Report 18462930 (Version 4)
Quarter: 2021Q2

REPORT INFORMATION
  Report Type: Report from Study
  Country: CA (occurrence: CA)
  Receive Date: 20201104
  Receipt Date: 20210416
  Transmission Date: 20210717
  Serious: Yes (Other)
  Sender: FDA-Public Use
  Company Number: CA-HLS-202006557

PATIENT
  Sex: Male

DRUGS (1)
  1. CLOZARIL [Suspect]
     Active Substance: CLOZAPINE
     Indication: PRODUCT USED FOR UNKNOWN INDICATION
     Route: 048
     Dates: start: 19930624

REACTIONS (4)
  - Malaise [Recovered/Resolved]
  - SARS-CoV-2 test positive [Recovered/Resolved]
  - Malaise [Unknown]
  - Paranoia [Unknown]
